FAERS Safety Report 8382699-0 (Version None)
Quarter: 2012Q2

REPORT INFORMATION
  Report Type: 
  Country: None (occurrence: None)
  Receive Date: 20120524
  Receipt Date: 20120515
  Transmission Date: 20120825
  Serious: Yes (Hospitalization, Other)
  Sender: FDA-Public Use
  Company Number: JP-VERTEX PHARMACEUTICALS INC.-AE-2012-003273

PATIENT
  Age: 63 Year
  Sex: Male

DRUGS (14)
  1. TELAVIC (TELAPREVIR) [Suspect]
     Indication: HEPATITIS C
     Route: 048
     Dates: start: 20120207, end: 20120307
  2. TELAVIC (TELAPREVIR) [Suspect]
     Route: 048
     Dates: start: 20120308, end: 20120324
  3. REBETOL [Concomitant]
     Route: 048
     Dates: start: 20120501
  4. CONIEL [Concomitant]
     Route: 048
  5. REBETOL [Concomitant]
     Route: 048
     Dates: start: 20120424, end: 20120430
  6. PEG-INTRON [Concomitant]
     Route: 058
  7. SEDEKOPAN [Concomitant]
     Route: 048
     Dates: start: 20120309
  8. TELAVIC (TELAPREVIR) [Suspect]
     Route: 048
     Dates: start: 20120417, end: 20120430
  9. REBETOL [Concomitant]
     Indication: HEPATITIS C
     Route: 048
     Dates: start: 20120207, end: 20120306
  10. REBETOL [Concomitant]
     Route: 048
     Dates: start: 20120307, end: 20120309
  11. PEG-INTRON [Concomitant]
     Route: 058
     Dates: start: 20120207
  12. REBETOL [Concomitant]
     Route: 048
     Dates: start: 20120310
  13. REBETOL [Concomitant]
     Route: 048
     Dates: end: 20120328
  14. REBETOL [Concomitant]
     Route: 048
     Dates: start: 20120329, end: 20120423

REACTIONS (4)
  - RENAL DISORDER [None]
  - SYNCOPE [None]
  - ANAEMIA [None]
  - DECREASED APPETITE [None]
